FAERS Safety Report 6983534-5 (Version None)
Quarter: 2010Q3

REPORT INFORMATION
  Report Type: 
  Country: None (occurrence: None)
  Receive Date: 20100914
  Receipt Date: 20080723
  Transmission Date: 20110219
  Serious: No
  Sender: FDA-Public Use
  Company Number: US-WYE-H05244708

PATIENT
  Age: 75 Year
  Sex: Male

DRUGS (1)
  1. ADVIL LIQUI-GELS [Suspect]

REACTIONS (3)
  - BLOOD URINE PRESENT [None]
  - INFECTION [None]
  - POLLAKIURIA [None]
